FAERS Safety Report 11068423 (Version 1)
Quarter: 2015Q2

REPORT INFORMATION
  Report Type: Spontaneous
  Country: US (occurrence: US)
  Receive Date: 20150427
  Receipt Date: 20150427
  Transmission Date: 20150821
  Serious: Yes (Disabling, Other)
  Sender: FDA-Public Use
  Company Number: CHPA2015US005469

PATIENT
  Age: 64 Year
  Sex: Male

DRUGS (1)
  1. EXCEDRIN [Suspect]
     Active Substance: ACETAMINOPHEN\ASPIRIN\CAFFEINE
     Indication: PRODUCT USED FOR UNKNOWN INDICATION
     Dosage: 1 DF, BID
     Route: 048
     Dates: start: 1969, end: 2004

REACTIONS (4)
  - Autoimmune disorder [Unknown]
  - Disability [Unknown]
  - Neoplasm malignant [Unknown]
  - Pulmonary embolism [Unknown]
